FAERS Safety Report 25393882 (Version 1)
Quarter: 2025Q2

REPORT INFORMATION
  Report Type: Spontaneous
  Country: US (occurrence: None)
  Receive Date: 20250604
  Receipt Date: 20250604
  Transmission Date: 20250716
  Serious: No
  Sender: Valinor Pharma
  Company Number: US-Valinor Pharma, LLC-VLR202502-000058

PATIENT
  Age: 69 Year
  Sex: Female
  Weight: 58.96 kg

DRUGS (4)
  1. MOVANTIK [Suspect]
     Active Substance: NALOXEGOL OXALATE
     Indication: Constipation
     Dosage: THE PATIENT WAS SHORT IN HEIGHT AND SMALL IN SIZE, DUE TO THAT THE PATIENT WAS PRESCRIBED LOWER DOSE
     Route: 048
     Dates: start: 20250205
  2. TRAMADOL [Concomitant]
     Active Substance: TRAMADOL
     Indication: Pain
     Route: 065
  3. SYNTHROID [Concomitant]
     Active Substance: LEVOTHYROXINE SODIUM
     Indication: Hypothyroidism
     Route: 065
  4. ASPIRIN [Concomitant]
     Active Substance: ASPIRIN
     Indication: Thrombosis prophylaxis
     Route: 065

REACTIONS (3)
  - Dyschezia [Unknown]
  - Faeces discoloured [Unknown]
  - Therapeutic product effect incomplete [Unknown]

NARRATIVE: CASE EVENT DATE: 20250201
